FAERS Safety Report 4966976-9 (Version None)
Quarter: 2006Q2

REPORT INFORMATION
  Report Type: 
  Country: None (occurrence: None)
  Receive Date: 20060403
  Receipt Date: 20060324
  Transmission Date: 20061013
  Serious: Yes (Other)
  Sender: FDA-Public Use
  Company Number: 2006042052

PATIENT
  Sex: Female

DRUGS (1)
  1. ZOLOFT (SERTRALINE) [Suspect]
     Indication: DEPRESSION
     Dosage: 50 MG (50 MG, 1 IN 1 D), UNKNOWN
     Route: 065

REACTIONS (2)
  - FEEDING TUBE COMPLICATION [None]
  - OESOPHAGEAL CARCINOMA [None]
